FAERS Safety Report 17243535 (Version 2)
Quarter: 2020Q1

REPORT INFORMATION
  Report Type: Report from Study
  Country: US (occurrence: US)
  Receive Date: 20200107
  Receipt Date: 20200117
  Transmission Date: 20200409
  Serious: Yes (Hospitalization, Other)
  Sender: FDA-Public Use
  Company Number: US-SHIRE-US201945184

PATIENT
  Age: 54 Year
  Sex: Female

DRUGS (3)
  1. GATTEX [Suspect]
     Active Substance: TEDUGLUTIDE\WATER
     Indication: SHORT-BOWEL SYNDROME
     Dosage: 2.5 MILLIGRAM, 1X/DAY:QD
     Route: 058
     Dates: start: 20190304
  2. GATTEX [Suspect]
     Active Substance: TEDUGLUTIDE\WATER
     Indication: MELAENA
     Dosage: 0.2500 UNIT UNKNOWN, 1X/DAY:QD
     Route: 058
     Dates: start: 20190306
  3. GATTEX [Suspect]
     Active Substance: TEDUGLUTIDE\WATER
     Dosage: 2.5 MILLIGRAM, 1X/DAY:QD
     Route: 058
     Dates: start: 20191101

REACTIONS (7)
  - Lung disorder [Unknown]
  - White blood cell count increased [Unknown]
  - Hospitalisation [Unknown]
  - Malaise [Unknown]
  - Fungal infection [Recovered/Resolved]
  - Body temperature increased [Unknown]
  - Ill-defined disorder [Unknown]

NARRATIVE: CASE EVENT DATE: 20191223
